FAERS Safety Report 20216500 (Version 1)
Quarter: 2021Q4

REPORT INFORMATION
  Report Type: Spontaneous
  Country: US (occurrence: None)
  Receive Date: 20211221
  Receipt Date: 20211221
  Transmission Date: 20220304
  Serious: Yes (Hospitalization)
  Sender: FDA-Public Use
  Company Number: None

PATIENT
  Age: 34 Year
  Sex: Female
  Weight: 58.5 kg

DRUGS (9)
  1. NIVOLUMAB [Suspect]
     Active Substance: NIVOLUMAB
     Dosage: OTHER FREQUENCY : EVERY TWO WEEKS;?
     Route: 041
     Dates: start: 20211015, end: 20211202
  2. IPILIMUMAB [Suspect]
     Active Substance: IPILIMUMAB
     Indication: Breast cancer
     Dosage: OTHER FREQUENCY : EVERY 6 WEEKS;?
     Route: 041
     Dates: start: 20211015, end: 20211202
  3. SOLU-MEDROL [Concomitant]
     Active Substance: METHYLPREDNISOLONE SODIUM SUCCINATE
  4. AZTREONAM [Concomitant]
     Active Substance: AZTREONAM
  5. VANCOMYCIN [Concomitant]
     Active Substance: VANCOMYCIN
  6. PHENYLEPHRINE [Concomitant]
     Active Substance: PHENYLEPHRINE HYDROCHLORIDE
  7. TYLENOL [Concomitant]
     Active Substance: ACETAMINOPHEN
     Dates: start: 20211215
  8. LEVOTHYROXINE [Concomitant]
     Active Substance: LEVOTHYROXINE
     Dates: start: 20211015
  9. BICALUTAMIDE [Concomitant]
     Active Substance: BICALUTAMIDE
     Dates: start: 20211015

REACTIONS (13)
  - Pyrexia [None]
  - Rash [None]
  - Aspartate aminotransferase increased [None]
  - Blood sodium decreased [None]
  - White blood cell count decreased [None]
  - Haemoglobin decreased [None]
  - Neutrophil count decreased [None]
  - Alanine aminotransferase increased [None]
  - Blood alkaline phosphatase increased [None]
  - Pleural effusion [None]
  - Septic shock [None]
  - Platelet count decreased [None]
  - Hepatic enzyme increased [None]

NARRATIVE: CASE EVENT DATE: 20211215
